FAERS Safety Report 14576185 (Version 2)
Quarter: 2019Q1

REPORT INFORMATION
  Report Type: Spontaneous
  Country: US (occurrence: US)
  Receive Date: 20180227
  Receipt Date: 20190307
  Transmission Date: 20190417
  Serious: Yes (Hospitalization, Other)
  Sender: FDA-Public Use
  Company Number: US-ASTRAZENECA-2018SE22887

PATIENT
  Age: 26153 Day
  Sex: Male

DRUGS (2)
  1. ENZALUTAMIDE [Interacting]
     Active Substance: ENZALUTAMIDE
     Indication: PROSTATE CANCER
     Route: 048
     Dates: start: 20170125
  2. BRILINTA [Suspect]
     Active Substance: TICAGRELOR
     Indication: PRODUCT USED FOR UNKNOWN INDICATION
     Route: 048

REACTIONS (9)
  - Nasal dryness [Unknown]
  - Blood potassium increased [Not Recovered/Not Resolved]
  - Coeliac disease [Unknown]
  - Dysgeusia [Unknown]
  - Vomiting [Unknown]
  - Nausea [Unknown]
  - Decreased appetite [Unknown]
  - Drug interaction [Unknown]
  - Epistaxis [Unknown]

NARRATIVE: CASE EVENT DATE: 20170725
